FAERS Safety Report 12311657 (Version 1)
Quarter: 2016Q2

REPORT INFORMATION
  Report Type: Report from Study
  Country: US (occurrence: US)
  Receive Date: 20160427
  Receipt Date: 20160427
  Transmission Date: 20160815
  Serious: Yes (Other)
  Sender: FDA-Public Use
  Company Number: US-BMSGILMSD-2016-0194875

PATIENT
  Age: 35 Year
  Sex: Male
  Weight: 92.97 kg

DRUGS (1)
  1. EFAVIRENZ/EMTRICITABINE/TENOFOVIR DISOPROXIL FUMARATE [Suspect]
     Active Substance: EFAVIRENZ\EMTRICITABINE\TENOFOVIR DISOPROXIL FUMARATE
     Indication: HIV INFECTION
     Dosage: 1 UNK, UNK
     Route: 048

REACTIONS (2)
  - Osteopenia [Unknown]
  - Renal impairment [Unknown]

NARRATIVE: CASE EVENT DATE: 2016
